FAERS Safety Report 5794902-1 (Version None)
Quarter: 2008Q2

REPORT INFORMATION
  Report Type: 
  Country: None (occurrence: None)
  Receive Date: 20080630
  Receipt Date: 20080620
  Transmission Date: 20081010
  Serious: Yes (Death)
  Sender: FDA-Public Use
  Company Number: TW-ABBOTT-08P-153-0459280-00

PATIENT
  Age: 7 Year
  Sex: Male

DRUGS (4)
  1. DEPAKENE [Suspect]
     Indication: EPILEPSY
     Dosage: 167.7MG/HR
     Route: 042
  2. DEPAKENE [Suspect]
     Dosage: 3200MG/HR
  3. DEPAKENE [Suspect]
     Dosage: 3000MG/HR
  4. DEPAKENE [Suspect]
     Dosage: 1800MG/HR

REACTIONS (2)
  - DRUG LEVEL ABOVE THERAPEUTIC [None]
  - DRUG TOXICITY [None]
